FAERS Safety Report 4554514-4 (Version None)
Quarter: 2005Q1

REPORT INFORMATION
  Report Type: 
  Country: None (occurrence: None)
  Receive Date: 20050114
  Receipt Date: 20040517
  Transmission Date: 20050727
  Serious: Yes (Other)
  Sender: FDA-Public Use
  Company Number: GXKR2004US00595

PATIENT
  Age: 73 Year
  Sex: Male

DRUGS (15)
  1. FLUCONAZOLE [Suspect]
     Indication: ONYCHOMYCOSIS
     Dosage: 150 MG, QW
  2. NITROFURANTOIN [Suspect]
     Indication: URINARY TRACT INFECTION
     Dosage: 50 MG
  3. TERAZOSIN (TERAZOSIN) [Concomitant]
  4. CIMETIDINE [Concomitant]
  5. FLUTICASONE PROPIONATE [Concomitant]
  6. DIPHENHYDRAMINE (DIPHENHYDRAMINE) [Concomitant]
  7. IBUPROFEN [Concomitant]
  8. FLUOCINONIDE (FLUOCINONIDE) OINTMENT [Concomitant]
  9. MULTIVITAMINS (ASCORBIC ACID, ERGOCALCIFEROL, FOLIC ACID, NICOTINAMIDE [Concomitant]
  10. VITAMIN E [Concomitant]
  11. CALCIUM CITRATE (CALCIUM CITRATE) [Concomitant]
  12. VITAMIN D [Concomitant]
  13. ACETYLSALICYLATE (ACETYLSALICYLIC ACID) [Concomitant]
  14. CALCIUM POLYCARBOPHIL (CALCIUM POLYCARBOPHIL) [Concomitant]
  15. DOCUSATE SODIUM (DOCUSATE SODIUM) [Concomitant]

REACTIONS (11)
  - DRUG INTERACTION [None]
  - DYSPNOEA EXERTIONAL [None]
  - FATIGUE [None]
  - HEPATOTOXICITY [None]
  - PLEURITIC PAIN [None]
  - PRODUCTIVE COUGH [None]
  - PULMONARY FIBROSIS [None]
  - PULMONARY OEDEMA [None]
  - PULMONARY TOXICITY [None]
  - THERAPEUTIC AGENT TOXICITY [None]
  - TRACHEAL PAIN [None]
